FAERS Safety Report 17599763 (Version 3)
Quarter: 2020Q2

REPORT INFORMATION
  Report Type: Report from Study
  Country: CN (occurrence: CN)
  Receive Date: 20200330
  Receipt Date: 20200403
  Transmission Date: 20200713
  Serious: Yes (Other)
  Sender: FDA-Public Use
  Company Number: CN-ASTRAZENECA-2020SE42700

PATIENT
  Age: 58 Year
  Sex: Male
  Weight: 71 kg

DRUGS (3)
  1. METFORMIN [Concomitant]
     Active Substance: METFORMIN HYDROCHLORIDE
     Indication: BLOOD GLUCOSE ABNORMAL
     Dosage: ONE TABLET AFTER MEALS THREE TIMES A DAY
     Route: 048
  2. ACARBOSE. [Concomitant]
     Active Substance: ACARBOSE
     Dosage: ONE TABLET AT A TIME THREE TIMES A DAY
     Route: 048
  3. BYDUREON [Suspect]
     Active Substance: EXENATIDE
     Indication: DIABETES MELLITUS
     Route: 058
     Dates: start: 2019, end: 2019

REACTIONS (4)
  - Cardiac discomfort [Recovered/Resolved]
  - Hypertension [Recovered/Resolved]
  - Cerebrovascular disorder [Unknown]
  - Cardiovascular disorder [Unknown]

NARRATIVE: CASE EVENT DATE: 2019
